FAERS Safety Report 18558534 (Version 1)
Quarter: 2020Q4

REPORT INFORMATION
  Report Type: Spontaneous
  Country: RO (occurrence: RO)
  Receive Date: 20201130
  Receipt Date: 20201130
  Transmission Date: 20210114
  Serious: Yes (Other)
  Sender: FDA-Public Use
  Company Number: NVSC2020RO307279

PATIENT
  Age: 36 Year
  Sex: Female

DRUGS (2)
  1. METHOTREXATE. [Suspect]
     Active Substance: METHOTREXATE
     Indication: PRODUCT USED FOR UNKNOWN INDICATION
     Dosage: 20 MG, QW
     Route: 065
     Dates: start: 201412, end: 201808
  2. METHOTREXATE. [Suspect]
     Active Substance: METHOTREXATE
     Dosage: 10 MG, UNKNOWN
     Route: 065

REACTIONS (11)
  - Neutrophil count increased [Unknown]
  - Lymphocyte count decreased [Unknown]
  - Neutrophil count decreased [Unknown]
  - Thrombocytopenia [Unknown]
  - Drug ineffective [Unknown]
  - Leukopenia [Unknown]
  - Red blood cell sedimentation rate increased [Unknown]
  - Monocyte count decreased [Unknown]
  - Eosinophil count decreased [Unknown]
  - Investigation abnormal [Unknown]
  - Pyrexia [Unknown]

NARRATIVE: CASE EVENT DATE: 20190109
